FAERS Safety Report 24674915 (Version 1)
Quarter: 2024Q4

REPORT INFORMATION
  Report Type: Spontaneous
  Country: US (occurrence: US)
  Receive Date: 20241128
  Receipt Date: 20241128
  Transmission Date: 20250115
  Serious: No
  Sender: MERCK
  Company Number: US-009507513-2411USA009689

PATIENT
  Age: 65 Year
  Sex: Male

DRUGS (2)
  1. WELIREG [Suspect]
     Active Substance: BELZUTIFAN
     Indication: Acquired gene mutation
     Dosage: 120 MILLIGRAM, DAILY (QD)
     Route: 048
     Dates: start: 202303
  2. WELIREG [Suspect]
     Active Substance: BELZUTIFAN
     Dosage: 80 MILLIGRAM, DAILY (QD)
     Route: 048
     Dates: start: 202307

REACTIONS (2)
  - Anaemia [Recovered/Resolved]
  - Therapy partial responder [Unknown]

NARRATIVE: CASE EVENT DATE: 20230701
